FAERS Safety Report 9220712 (Version 1)
Quarter: 2013Q2

REPORT INFORMATION
  Report Type: Spontaneous
  Country: US (occurrence: US)
  Receive Date: 20130409
  Receipt Date: 20130409
  Transmission Date: 20140414
  Serious: No
  Sender: FDA-Public Use
  Company Number: US-UPSHER-SMITH LABORATORIES, INC.-12003295

PATIENT
  Age: 76 Year
  Sex: Female

DRUGS (6)
  1. PREVALITE [Suspect]
     Indication: DIARRHOEA
     Dosage: 4 G, QD
     Route: 048
     Dates: start: 20121103, end: 20121105
  2. LIPITOR [Concomitant]
     Dosage: UNK
  3. LASIX                              /00032601/ [Concomitant]
     Dosage: UNK
  4. POTASSIUM [Concomitant]
     Dosage: UNK
  5. CALTRATE                           /00108001/ [Concomitant]
     Dosage: UNK
  6. VITAMINS NOS [Concomitant]
     Dosage: UNK

REACTIONS (1)
  - Urticaria [Recovering/Resolving]
